FAERS Safety Report 6369826-1 (Version None)
Quarter: 2009Q3

REPORT INFORMATION
  Report Type: 
  Country: None (occurrence: None)
  Receive Date: 20090923
  Receipt Date: 20090916
  Transmission Date: 20100115
  Serious: Yes (Death, Hospitalization, Other)
  Sender: FDA-Public Use
  Company Number: FR-ELI_LILLY_AND_COMPANY-FR200904004768

PATIENT
  Age: 78 Year
  Sex: Male
  Weight: 62 kg

DRUGS (7)
  1. ALIMTA [Suspect]
     Indication: LUNG ADENOCARCINOMA
     Dosage: 500 MG/M2, OTHER (EVERY THREE WEEKS)
     Route: 042
     Dates: start: 20090224, end: 20090224
  2. FOLIC ACID [Concomitant]
     Indication: VITAMIN SUPPLEMENTATION
  3. VITAMIN B-12 [Concomitant]
     Indication: VITAMIN SUPPLEMENTATION
  4. COAPROVEL [Concomitant]
     Indication: HYPERTENSION
  5. RAMIPRIL [Concomitant]
     Indication: HYPERTENSION
  6. LOXEN [Concomitant]
     Indication: HYPERTENSION
  7. CORTICOSTEROIDS [Concomitant]
     Indication: PROPHYLAXIS

REACTIONS (9)
  - CACHEXIA [None]
  - CATHETER RELATED INFECTION [None]
  - FALL [None]
  - FEBRILE NEUTROPENIA [None]
  - FEMORAL NECK FRACTURE [None]
  - PROSTATITIS [None]
  - RENAL FAILURE [None]
  - TACHYCARDIA [None]
  - THROMBOCYTOPENIA [None]
